FAERS Safety Report 8542968-8 (Version None)
Quarter: 2012Q3

REPORT INFORMATION
  Report Type: 
  Country: None (occurrence: None)
  Receive Date: 20120727
  Receipt Date: 20120723
  Transmission Date: 20120928
  Serious: No
  Sender: FDA-Public Use
  Company Number: US-PFIZER INC-2012140566

PATIENT
  Sex: Female
  Weight: 62 kg

DRUGS (7)
  1. FLECTOR [Suspect]
     Indication: NECK PAIN
  2. NEXIUM [Concomitant]
     Dosage: 40 MG, A DAY
  3. FLECTOR [Suspect]
     Dosage: UNK, 2X/DAY
     Route: 061
     Dates: start: 20090101
  4. CORTISONE [Concomitant]
     Indication: PAIN
     Dosage: UNK
  5. NEURONTIN [Concomitant]
     Dosage: 100 MG, 2X/DAY
  6. FLECTOR [Suspect]
     Indication: INTERVERTEBRAL DISC PROTRUSION
     Dosage: ONE PATCH PER 24 HOURS
     Route: 061
     Dates: start: 20081004
  7. FLECTOR [Suspect]
     Indication: BACK PAIN

REACTIONS (1)
  - FIBROMYALGIA [None]
